FAERS Safety Report 22344634 (Version 1)
Quarter: 2023Q2

REPORT INFORMATION
  Report Type: Spontaneous
  Country: US (occurrence: None)
  Receive Date: 20230518
  Receipt Date: 20230518
  Transmission Date: 20230721
  Serious: Yes (Hospitalization)
  Sender: FDA-Public Use
  Company Number: None

PATIENT
  Sex: Male
  Weight: 98.8 kg

DRUGS (2)
  1. CISPLATIN [Suspect]
     Active Substance: CISPLATIN
     Dates: end: 20230329
  2. METOPROLOL [Concomitant]
     Active Substance: METOPROLOL

REACTIONS (8)
  - Hypotension [None]
  - Platelet count decreased [None]
  - Anaemia [None]
  - Troponin increased [None]
  - International normalised ratio increased [None]
  - Syncope [None]
  - Abdominal mass [None]
  - Abdominal wall haematoma [None]

NARRATIVE: CASE EVENT DATE: 20230515
